FAERS Safety Report 15284155 (Version 1)
Quarter: 2018Q3

REPORT INFORMATION
  Report Type: Spontaneous
  Country: JP (occurrence: JP)
  Receive Date: 20180816
  Receipt Date: 20180816
  Transmission Date: 20181010
  Serious: Yes (Other)
  Sender: FDA-Public Use
  Company Number: JP-BAYER-2018-149041

PATIENT
  Age: 66 Year
  Sex: Male
  Weight: 53 kg

DRUGS (1)
  1. KOVALTRY [Suspect]
     Active Substance: ANTIHEMOPHILIC FACTOR, HUMAN RECOMBINANT
     Indication: FACTOR VIII DEFICIENCY
     Dosage: 1000 IU, BIW
     Route: 042

REACTIONS (5)
  - Anti factor VIII antibody positive [None]
  - Anaemia [None]
  - Pyrexia [None]
  - Muscle haemorrhage [Recovering/Resolving]
  - Peripheral swelling [Recovering/Resolving]

NARRATIVE: CASE EVENT DATE: 201807
